FAERS Safety Report 4958933-3 (Version None)
Quarter: 2006Q1

REPORT INFORMATION
  Report Type: 
  Country: None (occurrence: None)
  Receive Date: 20060324
  Receipt Date: 20060313
  Transmission Date: 20060701
  Serious: Yes (Hospitalization)
  Sender: FDA-Public Use
  Company Number: HQWYE326114MAR06

PATIENT
  Age: 55 Year
  Sex: Male

DRUGS (7)
  1. RAPAMUNE [Suspect]
     Indication: PROPHYLAXIS AGAINST TRANSPLANT REJECTION
     Dosage: 2 MG 1X PER 1 DAY, ORAL
     Route: 048
     Dates: start: 20051205, end: 20060310
  2. PREDNISOLONE [Concomitant]
  3. CELLCEPT [Concomitant]
  4. LASIX [Concomitant]
  5. TENORMIN [Concomitant]
  6. OMEPRAZOLE [Concomitant]
  7. FERROUS FUMARATE [Concomitant]

REACTIONS (1)
  - LUNG DISORDER [None]
